FAERS Safety Report 18570920 (Version 1)
Quarter: 2020Q4

REPORT INFORMATION
  Report Type: Spontaneous
  Country: US (occurrence: US)
  Receive Date: 20201202
  Receipt Date: 20201202
  Transmission Date: 20210114
  Serious: No
  Sender: FDA-Public Use
  Company Number: US-ROCHE-2688613

PATIENT
  Sex: Male
  Weight: 7.45 kg

DRUGS (2)
  1. EVRYSDI [Suspect]
     Active Substance: RISDIPLAM
     Indication: SPINAL MUSCULAR ATROPHY
     Dosage: STRENGTH: 0.75 MG/1 ML, G-TUBE, ONGOING: NO
     Route: 051
     Dates: start: 20200815, end: 202009
  2. EVRYSDI [Suspect]
     Active Substance: RISDIPLAM
     Dosage: G-TUBE, ONGOING: YES
     Route: 051
     Dates: start: 202009

REACTIONS (3)
  - Product quality issue [Unknown]
  - Product preparation issue [Unknown]
  - No adverse event [Unknown]
